FAERS Safety Report 7536490 (Version 7)
Quarter: 2013Q2

REPORT INFORMATION
  Report Type: Report from Study
  Country: GB (occurrence: GB)
  Receive Date: 20100811
  Receipt Date: 20130424
  Transmission Date: 20140414
  Serious: Yes (Hospitalization, Other)
  Sender: FDA-Public Use
  Company Number: GB-MPIJNJ-2010-04206

PATIENT
  Sex: 0

DRUGS (3)
  1. VELCADE [Suspect]
     Indication: PLASMA CELL MYELOMA
     Dosage: 2.5 MG, UNK
     Route: 042
     Dates: start: 20100614, end: 20100712
  2. DEXAMETHASONE [Suspect]
     Indication: PLASMA CELL MYELOMA
     Dosage: 40 MG, UNK
     Route: 048
     Dates: start: 20100614, end: 20100708
  3. DOXORUBICIN [Suspect]
     Indication: PLASMA CELL MYELOMA
     Dosage: 68 MG, UNK
     Route: 042
     Dates: start: 20100614, end: 20100708

REACTIONS (4)
  - Steroid withdrawal syndrome [Recovered/Resolved]
  - Malaise [Recovered/Resolved]
  - Constipation [Recovered/Resolved]
  - Neuropathy peripheral [Recovered/Resolved]
